FAERS Safety Report 5349595-4 (Version None)
Quarter: 2007Q2

REPORT INFORMATION
  Report Type: 
  Country: None (occurrence: None)
  Receive Date: 20070607
  Receipt Date: 20070530
  Transmission Date: 20071010
  Serious: Yes (Hospitalization)
  Sender: FDA-Public Use
  Company Number: FR-ELI_LILLY_AND_COMPANY-FR200704004705

PATIENT
  Age: 87 Year
  Sex: Female

DRUGS (3)
  1. CORTISONE ACETATE [Concomitant]
     Indication: RHEUMATOID ARTHRITIS
  2. SKENAN [Concomitant]
     Indication: PAIN
  3. FORTEO [Suspect]
     Indication: OSTEOPOROSIS
     Dosage: 20 UG, DAILY (1/D)
     Route: 058
     Dates: start: 20061202, end: 20070201

REACTIONS (1)
  - LUNG INFECTION [None]
